FAERS Safety Report 18596115 (Version 1)
Quarter: 2020Q4

REPORT INFORMATION
  Report Type: Spontaneous
  Country: US (occurrence: US)
  Receive Date: 20201209
  Receipt Date: 20201209
  Transmission Date: 20210114
  Serious: Yes (Hospitalization)
  Sender: FDA-Public Use
  Company Number: None

PATIENT
  Age: 62 Year
  Sex: Male

DRUGS (26)
  1. APAP/CODEINE [Concomitant]
     Active Substance: ACETAMINOPHEN\CODEINE PHOSPHATE
  2. BREO ELLIPTA [Concomitant]
     Active Substance: FLUTICASONE FUROATE\VILANTEROL TRIFENATATE
  3. DICLOFENAC [Concomitant]
     Active Substance: DICLOFENAC
  4. PAROXETINE. [Concomitant]
     Active Substance: PAROXETINE
  5. CLOPIDOGREL [Concomitant]
     Active Substance: CLOPIDOGREL BISULFATE
  6. RANOLAZINE. [Concomitant]
     Active Substance: RANOLAZINE
  7. PREDNISOLONE. [Concomitant]
     Active Substance: PREDNISOLONE
  8. SIMVASTATIN. [Concomitant]
     Active Substance: SIMVASTATIN
  9. AMLODIPINE [Concomitant]
     Active Substance: AMLODIPINE BESYLATE
  10. SOD CHLORIDE INJ 3%, [Concomitant]
  11. GABAPENTIN. [Concomitant]
     Active Substance: GABAPENTIN
  12. LEVOTHYROXIN [Concomitant]
     Active Substance: LEVOTHYROXINE
  13. POT CL MICRO ER [Concomitant]
  14. MELOXICAM. [Concomitant]
     Active Substance: MELOXICAM
  15. ROPINIROLE. [Concomitant]
     Active Substance: ROPINIROLE
  16. SPIRIVA [Concomitant]
     Active Substance: TIOTROPIUM BROMIDE MONOHYDRATE
  17. SILDENAFIL 20MG TAB [Suspect]
     Active Substance: SILDENAFIL
     Indication: PULMONARY ARTERIAL HYPERTENSION
     Dosage: ?          OTHER DOSE:1 TAB;?
     Route: 048
     Dates: start: 20200618
  18. MULTIVITAMIN WOMENS [Concomitant]
  19. MONTELUKAST [Concomitant]
     Active Substance: MONTELUKAST SODIUM
  20. OFLOXACIN. [Concomitant]
     Active Substance: OFLOXACIN
  21. TRAZODONE [Concomitant]
     Active Substance: TRAZODONE HYDROCHLORIDE
  22. DOXYCYCL HYC [Concomitant]
  23. STIOLTOFUROSEMIDE [Concomitant]
  24. METFORMIN [Concomitant]
     Active Substance: METFORMIN HYDROCHLORIDE
  25. PANTOPRAZOLE [Concomitant]
     Active Substance: PANTOPRAZOLE
  26. PREDNISONE. [Concomitant]
     Active Substance: PREDNISONE

REACTIONS (1)
  - Chronic obstructive pulmonary disease [None]

NARRATIVE: CASE EVENT DATE: 20201129
